FAERS Safety Report 5486717-9 (Version None)
Quarter: 2007Q4

REPORT INFORMATION
  Report Type: 
  Country: None (occurrence: None)
  Receive Date: 20071016
  Receipt Date: 20071005
  Transmission Date: 20080405
  Serious: Yes (Other)
  Sender: FDA-Public Use
  Company Number: HQWYE972910JUL04

PATIENT
  Sex: Female

DRUGS (5)
  1. PREMARIN [Suspect]
     Dosage: UNKNOWN
     Dates: start: 20000101, end: 20030101
  2. ESTROPIPATE [Suspect]
     Dosage: UNKNOWN
     Dates: start: 19860101, end: 20030101
  3. OGEN [Suspect]
     Dosage: UNKNOWN
     Dates: start: 19860101, end: 20030101
  4. ESTRATAB [Suspect]
     Dosage: UNKNOWN
     Dates: start: 19860101, end: 20030101
  5. ESTRADERM [Suspect]
     Dosage: UNKNOWN
     Dates: start: 19860101, end: 20030101

REACTIONS (1)
  - BREAST CANCER METASTATIC [None]
